FAERS Safety Report 16874131 (Version 1)
Quarter: 2019Q4

REPORT INFORMATION
  Report Type: Spontaneous
  Country: FR (occurrence: FR)
  Receive Date: 20191001
  Receipt Date: 20191001
  Transmission Date: 20200122
  Serious: Yes (Congenital Anomaly, Other)
  Sender: FDA-Public Use
  Company Number: FR-UCBSA-2019041214

PATIENT
  Sex: Female

DRUGS (2)
  1. KEPPRA [Suspect]
     Active Substance: LEVETIRACETAM
     Indication: PRODUCT USED FOR UNKNOWN INDICATION
     Dosage: 750 MG
     Route: 064
  2. KEPPRA [Suspect]
     Active Substance: LEVETIRACETAM
     Dosage: 2000 MG
     Route: 064

REACTIONS (3)
  - Kidney malformation [Unknown]
  - Maternal exposure before pregnancy [Unknown]
  - Spine malformation [Unknown]

NARRATIVE: CASE EVENT DATE: 2019
